FAERS Safety Report 14999298 (Version 1)
Quarter: 2018Q2

REPORT INFORMATION
  Report Type: Spontaneous
  Country: US (occurrence: US)
  Receive Date: 20180521
  Receipt Date: 20180521
  Transmission Date: 20180711
  Serious: No
  Sender: FDA-Public Use
  Company Number: None

PATIENT
  Age: 59 Year
  Sex: Female

DRUGS (1)
  1. KISQALI [Suspect]
     Active Substance: RIBOCICLIB
     Indication: BREAST CANCER FEMALE
     Route: 048
     Dates: start: 20171018, end: 20180515

REACTIONS (4)
  - Fatigue [None]
  - Gastrooesophageal reflux disease [None]
  - Asthenia [None]
  - Cold sweat [None]

NARRATIVE: CASE EVENT DATE: 20180518
